FAERS Safety Report 9928716 (Version 1)
Quarter: 2014Q1

REPORT INFORMATION
  Report Type: Spontaneous
  Country: AU (occurrence: None)
  Receive Date: 20140225
  Receipt Date: 20140225
  Transmission Date: 20141002
  Serious: Yes (Other)
  Sender: FDA-Public Use
  Company Number: 2013000512

PATIENT
  Age: 50 Year
  Sex: Female

DRUGS (1)
  1. ACEON (PERINDOPRIL ERBUMINE) TABLET [Suspect]
     Indication: PRODUCT USED FOR UNKNOWN INDICATION

REACTIONS (3)
  - Hypertension [None]
  - Angioedema [None]
  - Face oedema [None]
